FAERS Safety Report 9399527 (Version 1)
Quarter: 2013Q3

REPORT INFORMATION
  Report Type: Spontaneous
  Country: GB (occurrence: None)
  Receive Date: 20130710
  Receipt Date: 20130710
  Transmission Date: 20140515
  Serious: Yes (Other)
  Sender: FDA-Public Use
  Company Number: FK201302427

PATIENT
  Age: 71 Year
  Sex: Female

DRUGS (3)
  1. EPIRUBICIN [Suspect]
     Indication: PRODUCT USED FOR UNKNOWN INDICATION
  2. HERCEPTIN [Suspect]
     Indication: BREAST CANCER
     Dosage: INTRAVENOUS, (NOT OTHERWISE SPECIFIED)?
     Route: 042
     Dates: start: 20130214
  3. CYCLOPHOSPHAMIDE [Suspect]
     Indication: PRODUCT USED FOR UNKNOWN INDICATION

REACTIONS (11)
  - Arthralgia [None]
  - Insomnia [None]
  - Dyspnoea [None]
  - Cough [None]
  - Diarrhoea [None]
  - Dry skin [None]
  - Asthenia [None]
  - Fall [None]
  - Local swelling [None]
  - Joint swelling [None]
  - Joint swelling [None]
